FAERS Safety Report 23179952 (Version 1)
Quarter: 2023Q4

REPORT INFORMATION
  Report Type: Spontaneous
  Country: US (occurrence: US)
  Receive Date: 20231114
  Receipt Date: 20231114
  Transmission Date: 20240110
  Serious: No
  Sender: FDA-Public Use
  Company Number: US-BRISTOL-MYERS SQUIBB COMPANY-2023-162633

PATIENT
  Age: 75 Year
  Sex: Female

DRUGS (1)
  1. ONUREG [Suspect]
     Active Substance: AZACITIDINE
     Indication: Product used for unknown indication
     Dosage: FREQ : TAKE 1 TABLET (300MG) BY MOUTH ON DAYS 1-14 EVERY 35 DAYS.
     Route: 048

REACTIONS (1)
  - Off label use [Unknown]
